FAERS Safety Report 13402263 (Version 1)
Quarter: 2017Q2

REPORT INFORMATION
  Report Type: Spontaneous
  Country: US (occurrence: US)
  Receive Date: 20170404
  Receipt Date: 20170404
  Transmission Date: 20170830
  Serious: No
  Sender: FDA-Public Use
  Company Number: US-BAYER-2017-063928

PATIENT
  Sex: Female
  Weight: 50 kg

DRUGS (5)
  1. CLARITIN [Suspect]
     Active Substance: LORATADINE
     Dosage: 1 DF, UNK
     Route: 048
  2. VITAMIN D3 [Concomitant]
     Active Substance: CHOLECALCIFEROL
  3. BIOTIN [Concomitant]
     Active Substance: BIOTIN
  4. ADVIL [Concomitant]
     Active Substance: IBUPROFEN
  5. BAYER LOW DOSE [Suspect]
     Active Substance: ASPIRIN
     Route: 048

REACTIONS (2)
  - Product used for unknown indication [Unknown]
  - Product use issue [Unknown]
